FAERS Safety Report 5014680-3 (Version None)
Quarter: 2006Q2

REPORT INFORMATION
  Report Type: 
  Country: None (occurrence: None)
  Receive Date: 20060531
  Receipt Date: 20060519
  Transmission Date: 20061013
  Serious: Yes (Hospitalization)
  Sender: FDA-Public Use
  Company Number: KR-SANOFI-SYNTHELABO-A01200603779

PATIENT
  Sex: Male
  Weight: 67 kg

DRUGS (5)
  1. ASPIRIN [Concomitant]
     Indication: THROMBOSIS
     Route: 048
     Dates: start: 20040820
  2. ISOTRIL [Concomitant]
     Indication: DRUG USE FOR UNKNOWN INDICATION
     Route: 048
     Dates: start: 20040825
  3. LESCOL [Concomitant]
     Indication: HYPERLIPIDAEMIA
     Route: 048
     Dates: start: 20041019
  4. TRITACE [Concomitant]
     Indication: HYPERTENSION
     Route: 048
     Dates: start: 20041019
  5. PLAVIX [Suspect]
     Indication: THROMBOSIS
     Route: 048
     Dates: start: 20041017

REACTIONS (2)
  - ABDOMINAL PAIN UPPER [None]
  - CHOLECYSTITIS ACUTE [None]
